FAERS Safety Report 7761854-4 (Version None)
Quarter: 2011Q3

REPORT INFORMATION
  Report Type: 
  Country: None (occurrence: None)
  Receive Date: 20110915
  Receipt Date: 20110826
  Transmission Date: 20111222
  Serious: Yes (Other)
  Sender: FDA-Public Use
  Company Number: TPA2011A05444

PATIENT
  Age: 73 Year
  Sex: Female

DRUGS (2)
  1. FEBURIC (FEBUXOSTAT) [Suspect]
     Indication: HYPERURICAEMIA
     Dosage: 10 MG, 1 IN 1 D, PER ORAL
     Route: 048
     Dates: start: 20110621, end: 20110726
  2. SEFIROM (CEFTRIAXONE SODIUM) [Concomitant]

REACTIONS (1)
  - AGRANULOCYTOSIS [None]
